FAERS Safety Report 8732135 (Version 2)
Quarter: 2013Q1

REPORT INFORMATION
  Report Type: Spontaneous
  Country: FR (occurrence: None)
  Receive Date: 20120801
  Receipt Date: 20121025
  Transmission Date: 20140127
  Serious: Yes (Hospitalization, Other)
  Sender: FDA-Public Use
  Company Number: 2012000185

PATIENT
  Age: 75 Year
  Sex: Male

DRUGS (4)
  1. ACEON [Suspect]
     Indication: PRODUCT USED FOR UNKNOWN INDICATION
     Route: 048
  2. CORDARONE [Suspect]
     Indication: PRODUCT USED FOR UNKNOWN INDICATION
     Dosage: 6 DAYS/WEEK
     Route: 048
     Dates: end: 20120702
  3. BISOPROLOL FUMARATE [Suspect]
     Indication: PRODUCT USED FOR UNKNOWN INDICATION
     Route: 048
  4. FLUINDIONE [Suspect]
     Indication: PRODUCT USED FOR UNKNOWN INDICATION
     Route: 048

REACTIONS (9)
  - Lung disorder [None]
  - Acute respiratory failure [None]
  - Haemoptysis [None]
  - Fatigue [None]
  - Cough [None]
  - Pyrexia [None]
  - Asthenia [None]
  - Hypoxia [None]
  - Interstitial lung disease [None]
